FAERS Safety Report 10301935 (Version 1)
Quarter: 2014Q3

REPORT INFORMATION
  Report Type: Spontaneous
  Country: US (occurrence: None)
  Receive Date: 20140709
  Receipt Date: 20140709
  Transmission Date: 20150326
  Serious: Yes (Other)
  Sender: FDA-Public Use
  Company Number: 2014STP000289

PATIENT
  Age: 43 Year
  Sex: Female

DRUGS (14)
  1. GEMFIBROZIL (GEMFIBROZIL) [Concomitant]
     Active Substance: GEMFIBROZIL
  2. PERCOCET (OXYCODONE HYDROCHLORIDE, PARACETAMOL) [Concomitant]
  3. MIDAZOLAM HYDROCHLORIDE (MIDAZOLAM HYDROCHLORIDE) [Concomitant]
  4. TOPROL (METOPROLOL SUCCINATE) [Concomitant]
  5. SIMVASTATIN (SIMVASTATIN) [Concomitant]
     Active Substance: SIMVASTATIN
  6. HYDROCODONE BITARTRATE (HYDROCODONE BITARTRATE) [Concomitant]
  7. PROCYSBI DELAYED-RELEASE [Suspect]
     Active Substance: CYSTEAMINE BITARTRATE
     Indication: PRODUCT USED FOR UNKNOWN INDICATION
  8. TACROLIMUS (TACROLIMUS) [Concomitant]
     Active Substance: TACROLIMUS
  9. PREDNISONE (PREDNISONE) [Concomitant]
     Active Substance: PREDNISONE
  10. AZITHROMYCIN [Concomitant]
     Active Substance: AZITHROMYCIN ANHYDROUS
  11. MORPHINE SULFATE (MORPHINE SULFATE) INJECTION [Concomitant]
     Active Substance: MORPHINE SULFATE
  12. CYSTARAN [Suspect]
     Active Substance: CYSTEAMINE HYDROCHLORIDE
     Indication: AMINO ACID METABOLISM DISORDER
     Route: 047
     Dates: start: 20140109
  13. OXYCODONE HYDROCHLORIDE (OXYCODONE HYDROCHLORIDE) [Concomitant]
     Active Substance: OXYCODONE HYDROCHLORIDE
  14. OXYCONTIN [Concomitant]
     Active Substance: OXYCODONE HYDROCHLORIDE

REACTIONS (1)
  - Nephropathy toxic [None]

NARRATIVE: CASE EVENT DATE: 201406
